FAERS Safety Report 9274903 (Version 1)
Quarter: 2013Q2

REPORT INFORMATION
  Report Type: Spontaneous
  Country: US (occurrence: None)
  Receive Date: 20130501
  Receipt Date: 20130501
  Transmission Date: 20140414
  Serious: Yes (Hospitalization)
  Sender: FDA-Public Use
  Company Number: None

PATIENT
  Age: 71 Year
  Sex: Male
  Weight: 111.9 kg

DRUGS (2)
  1. LISINOPRIL [Suspect]
     Indication: HYPERTENSION
     Route: 048
     Dates: start: 20020128, end: 20130411
  2. LISINOPRIL [Suspect]
     Indication: DIABETES MELLITUS
     Route: 048
     Dates: start: 20020128, end: 20130411

REACTIONS (1)
  - Hyperkalaemia [None]
